FAERS Safety Report 15787119 (Version 1)
Quarter: 2019Q1

REPORT INFORMATION
  Report Type: Spontaneous
  Country: ES (occurrence: ES)
  Receive Date: 20190103
  Receipt Date: 20190103
  Transmission Date: 20190417
  Serious: Yes (Other)
  Sender: FDA-Public Use
  Company Number: ES-FRESENIUS KABI-FK201900053

PATIENT
  Age: 49 Year
  Sex: Male

DRUGS (2)
  1. CASPOFUNGIN (MANUFACTURER UNKNOWN) [Suspect]
     Active Substance: CASPOFUNGIN
     Indication: PNEUMONIA
  2. CASPOFUNGIN (MANUFACTURER UNKNOWN) [Suspect]
     Active Substance: CASPOFUNGIN
     Indication: CANDIDA PNEUMONIA
     Dosage: 50MG OF CASPOFUNGIN IN 5ML OF PHYSIOLOGIC SALINE (PS)
     Route: 055

REACTIONS (4)
  - Bradycardia [Unknown]
  - Intentional product use issue [Unknown]
  - Medication error [Unknown]
  - Hypotension [Unknown]
